FAERS Safety Report 6565143-5 (Version None)
Quarter: 2010Q1

REPORT INFORMATION
  Report Type: 
  Country: None (occurrence: None)
  Receive Date: 20100201
  Receipt Date: 20100126
  Transmission Date: 20100710
  Serious: Yes (Death)
  Sender: FDA-Public Use
  Company Number: B0603043A

PATIENT
  Age: 89 Year
  Sex: Female

DRUGS (17)
  1. ROPINIROLE [Suspect]
     Dosage: 3MG PER DAY
     Route: 048
  2. ROPINIROLE [Suspect]
     Indication: PARKINSON'S DISEASE
     Dosage: 6MG PER DAY
     Route: 048
  3. RISPERDAL [Suspect]
     Indication: PARKINSON'S DISEASE
     Route: 048
  4. FUROSEMIDE [Concomitant]
     Indication: DRUG USE FOR UNKNOWN INDICATION
     Route: 065
  5. CARBIDOPA [Concomitant]
     Indication: PARKINSON'S DISEASE
     Route: 065
  6. LEVODOPA [Concomitant]
     Indication: PARKINSON'S DISEASE
     Route: 065
  7. FORTISIP [Concomitant]
     Route: 048
  8. FORTISIP [Concomitant]
     Indication: DRUG USE FOR UNKNOWN INDICATION
     Route: 048
  9. BISOPROLOL [Concomitant]
     Indication: DRUG USE FOR UNKNOWN INDICATION
     Dosage: 5MG PER DAY
  10. LACTULOSE [Concomitant]
     Indication: DRUG USE FOR UNKNOWN INDICATION
     Dosage: 20ML PER DAY
     Route: 048
  11. ASPIRIN [Concomitant]
     Indication: DRUG USE FOR UNKNOWN INDICATION
     Dosage: 75MG PER DAY
     Route: 048
  12. DIGOXIN [Concomitant]
     Indication: DRUG USE FOR UNKNOWN INDICATION
     Dosage: 62.5MCG PER DAY
     Route: 048
  13. IRON [Concomitant]
     Indication: DRUG USE FOR UNKNOWN INDICATION
     Route: 048
  14. CARBIMAZOLE [Concomitant]
     Indication: DRUG USE FOR UNKNOWN INDICATION
     Route: 048
  15. SINEMET CR [Concomitant]
     Indication: DRUG USE FOR UNKNOWN INDICATION
     Route: 048
  16. SINEMET [Concomitant]
     Indication: DRUG USE FOR UNKNOWN INDICATION
     Dosage: 250MCG PER DAY
     Route: 048
  17. SINEMET [Concomitant]
     Route: 048

REACTIONS (2)
  - DEATH [None]
  - WRONG DRUG ADMINISTERED [None]
